FAERS Safety Report 6952595-1 (Version None)
Quarter: 2010Q3

REPORT INFORMATION
  Report Type: 
  Country: None (occurrence: None)
  Receive Date: 20100829
  Receipt Date: 20100506
  Transmission Date: 20110219
  Serious: No
  Sender: FDA-Public Use
  Company Number: US-ABBOTT-10P-163-0643598-00

PATIENT

DRUGS (2)
  1. NIASPAN [Suspect]
     Indication: BLOOD CHOLESTEROL INCREASED
     Dates: start: 20100415
  2. ASPIRIN [Concomitant]
     Indication: PROPHYLAXIS
     Dates: start: 20100415

REACTIONS (1)
  - FATIGUE [None]
